FAERS Safety Report 9019479 (Version 2)
Quarter: 2013Q2

REPORT INFORMATION
  Report Type: Spontaneous
  Country: US (occurrence: US)
  Receive Date: 20130118
  Receipt Date: 20130417
  Transmission Date: 20140414
  Serious: Yes (Other)
  Sender: FDA-Public Use
  Company Number: US-FRI-1000041719

PATIENT
  Age: 54 Year
  Sex: Male
  Weight: 109 kg

DRUGS (11)
  1. VIIBRYD [Suspect]
     Indication: DEPRESSION
     Dosage: 20 MG
     Route: 048
     Dates: start: 20121120, end: 201212
  2. VIIBRYD [Suspect]
     Dosage: 40 MG
     Route: 048
     Dates: start: 201212
  3. ALCOHOL [Suspect]
  4. XANAX [Concomitant]
     Indication: ANXIETY
     Dosage: 2 MG
  5. METFORMIN [Concomitant]
     Indication: DIABETES MELLITUS
     Dosage: 1000 MG
  6. OMEPRAZOLE [Concomitant]
     Indication: DYSPEPSIA
     Dosage: 20 MG
     Route: 048
     Dates: start: 20100212
  7. BENAZEPRIL [Concomitant]
     Indication: HYPERTENSION
     Dosage: 20 MG
     Route: 048
     Dates: start: 20100410
  8. FISH OIL [Concomitant]
     Dosage: 2400 MG
     Route: 048
     Dates: start: 20101104
  9. GLUCOSAMINE [Concomitant]
     Route: 048
     Dates: start: 20101104
  10. MILK THISTLE [Concomitant]
     Route: 048
     Dates: start: 20101104
  11. SAW PALMETTO [Concomitant]
     Route: 048
     Dates: start: 20101104

REACTIONS (6)
  - Blood glucose increased [Unknown]
  - Restless legs syndrome [Recovered/Resolved]
  - Anxiety [Unknown]
  - Mania [Unknown]
  - Diarrhoea [Unknown]
  - Agitation [Unknown]
